FAERS Safety Report 19844882 (Version 1)
Quarter: 2021Q3

REPORT INFORMATION
  Report Type: Spontaneous
  Country: US (occurrence: US)
  Receive Date: 20210917
  Receipt Date: 20210917
  Transmission Date: 20211014
  Serious: Yes (Death)
  Sender: FDA-Public Use
  Company Number: US-ABBVIE-21K-163-4083378-00

PATIENT
  Age: 79 Year
  Sex: Male
  Weight: 68.1 kg

DRUGS (2)
  1. HYDROCODONE [Concomitant]
     Active Substance: HYDROCODONE
     Indication: PAIN
  2. VENCLEXTA [Suspect]
     Active Substance: VENETOCLAX
     Indication: ACUTE MYELOID LEUKAEMIA
     Route: 048
     Dates: start: 202010, end: 202103

REACTIONS (2)
  - Acute myeloid leukaemia [Fatal]
  - Hallucination [Recovered/Resolved]

NARRATIVE: CASE EVENT DATE: 202012
